FAERS Safety Report 8133963-1 (Version None)
Quarter: 2012Q1

REPORT INFORMATION
  Report Type: 
  Country: None (occurrence: None)
  Receive Date: 20120213
  Receipt Date: 20120208
  Transmission Date: 20120608
  Serious: Yes (Other)
  Sender: FDA-Public Use
  Company Number: JP-B.I. PHARMACEUTICALS,INC./RIDGEFIELD-2012-BP-02464NB

PATIENT
  Age: 63 Year
  Sex: Male

DRUGS (7)
  1. ASPIRIN [Concomitant]
     Route: 065
  2. PRADAXA [Suspect]
     Indication: ATRIAL FIBRILLATION
     Dosage: 300 MG
     Route: 048
     Dates: start: 20110601, end: 20120201
  3. LANSOPRAZOLE [Concomitant]
     Route: 065
  4. SUNRYTHM [Concomitant]
     Route: 065
  5. AMARYL [Concomitant]
     Route: 065
  6. MICARDIS [Concomitant]
     Dosage: 40 MG
     Route: 048
  7. METFORMIN HCL [Concomitant]
     Route: 065

REACTIONS (1)
  - TRANSIENT ISCHAEMIC ATTACK [None]
